FAERS Safety Report 4723989-X (Version None)
Quarter: 2005Q3

REPORT INFORMATION
  Report Type: 
  Country: None (occurrence: None)
  Receive Date: 20050721
  Receipt Date: 20050711
  Transmission Date: 20060218
  Serious: Yes (Other)
  Sender: FDA-Public Use
  Company Number: US015607

PATIENT
  Age: 30 Year
  Sex: Female
  Weight: 56.6996 kg

DRUGS (10)
  1. GABITRIL [Suspect]
     Indication: ANXIETY
     Dosage: 4 MG QD ORAL
     Route: 048
     Dates: start: 20050103, end: 20050116
  2. GABITRIL [Suspect]
     Indication: ANXIETY
     Dosage: 8 MG QD ORAL
     Route: 048
     Dates: start: 20050117, end: 20050130
  3. GABITRIL [Suspect]
     Indication: ANXIETY
     Dosage: 12 MG QD ORAL
     Route: 048
     Dates: start: 20050131, end: 20050213
  4. GABITRIL [Suspect]
     Indication: ANXIETY
     Dosage: 16 MG QD ORAL
     Route: 048
     Dates: start: 20050214, end: 20050227
  5. GABITRIL [Suspect]
     Indication: ANXIETY
     Dosage: 20 MG QD ORAL
     Route: 048
     Dates: start: 20050228, end: 20050401
  6. GABITRIL [Suspect]
     Indication: ANXIETY
     Dosage: 24 MG QD ORAL
     Route: 048
     Dates: start: 20050401, end: 20050711
  7. GABITRIL [Suspect]
     Indication: ANXIETY
     Dosage: 12 MG QD ORAL
     Route: 048
     Dates: start: 20050713
  8. XANAX [Concomitant]
  9. IMIPRAMINE [Concomitant]
  10. PROPRANOLOL [Concomitant]

REACTIONS (5)
  - AMNESIA [None]
  - APHASIA [None]
  - CONFUSIONAL STATE [None]
  - PARTIAL SEIZURES [None]
  - UNRESPONSIVE TO VERBAL STIMULI [None]
